FAERS Safety Report 7575092-1 (Version None)
Quarter: 2011Q2

REPORT INFORMATION
  Report Type: 
  Country: None (occurrence: None)
  Receive Date: 20110627
  Receipt Date: 20110622
  Transmission Date: 20111010
  Serious: Yes (Other)
  Sender: FDA-Public Use
  Company Number: US-PFIZER INC-2010168575

PATIENT
  Sex: Female
  Weight: 75.737 kg

DRUGS (4)
  1. NOVOLIN 70/30 [Concomitant]
     Indication: DIABETES MELLITUS
     Dosage: UNK
  2. TRAMADOL [Concomitant]
     Indication: PAIN
     Dosage: 50 MG, UNK
  3. LYRICA [Suspect]
     Indication: DIABETIC NEUROPATHY
     Dosage: 100 MG, 3X/DAY
     Route: 048
     Dates: start: 20100201
  4. LIPITOR [Concomitant]
     Dosage: UNK

REACTIONS (6)
  - PAIN [None]
  - GALLBLADDER DISORDER [None]
  - DRUG INEFFECTIVE [None]
  - LIVER FUNCTION TEST ABNORMAL [None]
  - LABORATORY TEST ABNORMAL [None]
  - PAROSMIA [None]
